FAERS Safety Report 15890798 (Version 2)
Quarter: 2019Q1

REPORT INFORMATION
  Report Type: Spontaneous
  Country: US (occurrence: US)
  Receive Date: 20190130
  Receipt Date: 20190204
  Transmission Date: 20190417
  Serious: No
  Sender: FDA-Public Use
  Company Number: US-SA-2019SA022416

PATIENT
  Age: 55 Year
  Sex: Male

DRUGS (1)
  1. TOUJEO [Suspect]
     Active Substance: INSULIN GLARGINE
     Dosage: 52 AM AND 60 PM
     Route: 065

REACTIONS (3)
  - Injection site pain [Unknown]
  - Product contamination physical [Unknown]
  - Inappropriate schedule of product administration [Unknown]
